FAERS Safety Report 8585880-0 (Version None)
Quarter: 2012Q3

REPORT INFORMATION
  Report Type: 
  Country: None (occurrence: None)
  Receive Date: 20120802
  Receipt Date: 20120802
  Transmission Date: 20120928
  Serious: Yes (Life-Threatening, Other)
  Sender: FDA-Public Use
  Company Number: None

PATIENT
  Age: 28 Year
  Sex: Female
  Weight: 62.5964 kg

DRUGS (1)
  1. CHANTIX [Suspect]
     Indication: SMOKING CESSATION THERAPY
     Dosage: .5MG 1X/DAY 3D- 2X/D 4D PO; 1MG 2X/DAY D 8-  -90 PO
     Route: 048
     Dates: start: 20120717, end: 20120730

REACTIONS (5)
  - CRYING [None]
  - ANXIETY [None]
  - SUICIDAL IDEATION [None]
  - PAROSMIA [None]
  - DEPRESSION [None]
